FAERS Safety Report 24765923 (Version 1)
Quarter: 2024Q4

REPORT INFORMATION
  Report Type: Spontaneous
  Country: US (occurrence: None)
  Receive Date: 20241220
  Receipt Date: 20241220
  Transmission Date: 20250115
  Serious: No
  Sender: Public
  Company Number: None

PATIENT
  Age: 61 Year
  Sex: Female

DRUGS (1)
  1. AMBRISENTAN [Suspect]
     Active Substance: AMBRISENTAN
     Dosage: FREQUENCY : DAILY;?

REACTIONS (4)
  - Inability to afford medication [None]
  - Therapy interrupted [None]
  - Malaise [None]
  - Flatulence [None]

NARRATIVE: CASE EVENT DATE: 20241219
